FAERS Safety Report 14951604 (Version 1)
Quarter: 2018Q2

REPORT INFORMATION
  Report Type: Spontaneous
  Country: US (occurrence: US)
  Receive Date: 20180509
  Receipt Date: 20180509
  Transmission Date: 20180711
  Serious: No
  Sender: FDA-Public Use
  Company Number: None

PATIENT
  Age: 49 Year
  Sex: Female

DRUGS (1)
  1. GAMMAGARD [Suspect]
     Active Substance: HUMAN IMMUNOGLOBULIN G
     Indication: MYASTHENIA GRAVIS
     Dosage: ?          OTHER FREQUENCY:DAILY X 3 DOSES ;?
     Route: 042
     Dates: start: 20180502, end: 20180502

REACTIONS (4)
  - Body temperature increased [None]
  - Pain [None]
  - Headache [None]
  - Neck pain [None]

NARRATIVE: CASE EVENT DATE: 20180502
